FAERS Safety Report 5370080-8 (Version None)
Quarter: 2007Q2

REPORT INFORMATION
  Report Type: 
  Country: None (occurrence: None)
  Receive Date: 20070613
  Receipt Date: 20060811
  Transmission Date: 20071010
  Serious: Yes (Hospitalization)
  Sender: FDA-Public Use
  Company Number: PHEH2006US10422

PATIENT
  Sex: Male

DRUGS (1)
  1. EXELON [Suspect]

REACTIONS (2)
  - CHEST PAIN [None]
  - COUGH [None]
